FAERS Safety Report 5497090-4 (Version None)
Quarter: 2007Q4

REPORT INFORMATION
  Report Type: 
  Country: None (occurrence: None)
  Receive Date: 20071025
  Receipt Date: 20071022
  Transmission Date: 20080405
  Serious: Yes (Hospitalization)
  Sender: FDA-Public Use
  Company Number: ZA-MERCK-0710ZAF00003

PATIENT
  Age: 20 Year
  Sex: Male
  Weight: 90 kg

DRUGS (2)
  1. MAXALT [Suspect]
     Indication: MIGRAINE
     Route: 060
     Dates: start: 20071006, end: 20071006
  2. MAXALT [Suspect]
     Route: 060
     Dates: start: 20071006, end: 20071006

REACTIONS (3)
  - HEMIPARESIS [None]
  - ISCHAEMIA [None]
  - SENSORY LOSS [None]
